FAERS Safety Report 6497475-3 (Version None)
Quarter: 2009Q4

REPORT INFORMATION
  Report Type: 
  Country: None (occurrence: None)
  Receive Date: 20091211
  Receipt Date: 20090811
  Transmission Date: 20100525
  Serious: Yes (Hospitalization, Other)
  Sender: FDA-Public Use
  Company Number: ADR15172009(MHRA ADR NO:ADR 20470566001/ADR 20470566-003)

PATIENT
  Age: 80 Year
  Sex: Female

DRUGS (7)
  1. PRAVASTATIN [Suspect]
     Indication: HYPERCHOLESTEROLAEMIA
     Dosage: 20 MG - 1/1 DAY ORAL
     Route: 048
  2. AMITRIPTYLINE HYDROCHLORIDE [Concomitant]
  3. ARTHROTEC [Concomitant]
  4. ASPIRIN [Concomitant]
  5. ATENOLOL [Concomitant]
  6. HYDROCORTISONE [Concomitant]
  7. LEVOTHYROXINE SODIUM [Concomitant]

REACTIONS (15)
  - ABDOMINAL DISCOMFORT [None]
  - ANAEMIA [None]
  - COLITIS [None]
  - DECREASED APPETITE [None]
  - DEHYDRATION [None]
  - DIARRHOEA [None]
  - DRUG INTERACTION [None]
  - DRUG LEVEL INCREASED [None]
  - FIBROSIS [None]
  - LARGE INTESTINAL ULCER [None]
  - MUCOSAL INFLAMMATION [None]
  - PSEUDOPOLYPOSIS [None]
  - PULMONARY EMBOLISM [None]
  - TENDERNESS [None]
  - WEIGHT DECREASED [None]
